FAERS Safety Report 26122793 (Version 1)
Quarter: 2025Q4

REPORT INFORMATION
  Report Type: Spontaneous
  Country: US (occurrence: US)
  Receive Date: 20251204
  Receipt Date: 20251204
  Transmission Date: 20260117
  Serious: Yes (Hospitalization, Other)
  Sender: NOVARTIS
  Company Number: US-002147023-NVSC2025US185101

PATIENT
  Age: 72 Year
  Sex: Female

DRUGS (2)
  1. ALPELISIB [Suspect]
     Active Substance: ALPELISIB
     Indication: Clear cell endometrial carcinoma
     Dosage: 300 MG, QD EIGHT DAYS PRIOR TO ADMISSION
     Route: 065
  2. EMPAGLIFLOZIN [Concomitant]
     Active Substance: EMPAGLIFLOZIN
     Indication: Type 2 diabetes mellitus
     Dosage: UNK (MONOTHERAPY)
     Route: 065

REACTIONS (4)
  - Hyperglycaemia [Recovering/Resolving]
  - Condition aggravated [Recovering/Resolving]
  - Cerebrovascular accident [Unknown]
  - Off label use [Unknown]
